FAERS Safety Report 20770229 (Version 1)
Quarter: 2022Q2

REPORT INFORMATION
  Report Type: Spontaneous
  Country: DE (occurrence: DE)
  Receive Date: 20220429
  Receipt Date: 20220429
  Transmission Date: 20220721
  Serious: Yes (Other)
  Sender: FDA-Public Use
  Company Number: DE-ELI_LILLY_AND_COMPANY-DE202204009121

PATIENT
  Age: 60 Year
  Sex: Male

DRUGS (9)
  1. PEMETREXED [Suspect]
     Active Substance: PEMETREXED
     Indication: Product used for unknown indication
     Dosage: 500 MG/M2, UNKNOWN
     Route: 065
     Dates: start: 202012
  2. SELPERCATINIB [Suspect]
     Active Substance: SELPERCATINIB
     Indication: Product used for unknown indication
     Dosage: UNK, UNKNOWN
     Route: 065
     Dates: start: 202104
  3. SELPERCATINIB [Suspect]
     Active Substance: SELPERCATINIB
     Dosage: 80 MG, BID
     Route: 065
  4. SELPERCATINIB [Suspect]
     Active Substance: SELPERCATINIB
     Dosage: 120 MG, BID
     Route: 065
  5. CARBOPLATIN [Concomitant]
     Active Substance: CARBOPLATIN
     Indication: Product used for unknown indication
     Dosage: UNK, UNKNOWN
     Route: 065
     Dates: start: 202012
  6. CALCIUM\VITAMIN D [Concomitant]
     Active Substance: CALCIUM\VITAMIN D
     Indication: Product used for unknown indication
     Dosage: UNK, UNKNOWN
     Route: 065
     Dates: start: 202012
  7. DENOSUMAB [Concomitant]
     Active Substance: DENOSUMAB
     Indication: Product used for unknown indication
     Dosage: UNK, UNKNOWN
     Route: 065
     Dates: start: 202012
  8. AMLODIPINE [Concomitant]
     Active Substance: AMLODIPINE BESYLATE
     Indication: Hypertension
  9. NEBIVOLOL [Concomitant]
     Active Substance: NEBIVOLOL
     Indication: Hypertension

REACTIONS (5)
  - Pericardial effusion [Unknown]
  - Pleural effusion [Unknown]
  - Neutropenic sepsis [Unknown]
  - Malignant neoplasm progression [Unknown]
  - Transaminases increased [Unknown]
